FAERS Safety Report 8601794-1 (Version None)
Quarter: 2012Q3

REPORT INFORMATION
  Report Type: 
  Country: None (occurrence: None)
  Receive Date: 20120817
  Receipt Date: 20120510
  Transmission Date: 20120928
  Serious: Yes (Hospitalization)
  Sender: FDA-Public Use
  Company Number: US-BRISTOL-MYERS SQUIBB COMPANY-16530552

PATIENT
  Age: 78 Year
  Sex: Male

DRUGS (3)
  1. SPRYCEL [Suspect]
     Dates: start: 20100901
  2. LUPRON [Concomitant]
  3. PEPCID [Concomitant]

REACTIONS (2)
  - PERICARDIAL EFFUSION [None]
  - PLEURAL EFFUSION [None]
